FAERS Safety Report 8318373-6 (Version None)
Quarter: 2012Q2

REPORT INFORMATION
  Report Type: 
  Country: None (occurrence: None)
  Receive Date: 20120427
  Receipt Date: 20120419
  Transmission Date: 20120825
  Serious: Yes (Death, Other)
  Sender: FDA-Public Use
  Company Number: CA-JNJFOC-20110708701

PATIENT
  Sex: Female
  Weight: 70.31 kg

DRUGS (4)
  1. STELARA [Suspect]
     Route: 058
     Dates: start: 20100501
  2. STELARA [Suspect]
     Route: 058
     Dates: start: 20110202
  3. STELARA [Suspect]
     Indication: PSORIASIS
     Route: 058
     Dates: start: 20110719
  4. STELARA [Suspect]
     Route: 058
     Dates: start: 20110428

REACTIONS (1)
  - METASTATIC MALIGNANT MELANOMA [None]
